FAERS Safety Report 7395650-7 (Version None)
Quarter: 2011Q2

REPORT INFORMATION
  Report Type: 
  Country: None (occurrence: None)
  Receive Date: 20110405
  Receipt Date: 20110323
  Transmission Date: 20111010
  Serious: Yes (Hospitalization)
  Sender: FDA-Public Use
  Company Number: JP-AMGEN-JPNCT2011012556

PATIENT
  Age: 65 Year
  Sex: Female
  Weight: 68 kg

DRUGS (13)
  1. RANITAC [Concomitant]
     Indication: PROPHYLAXIS
     Route: 048
     Dates: start: 20090415
  2. METOLATE [Concomitant]
     Indication: RHEUMATOID ARTHRITIS
     Route: 048
     Dates: start: 20090415
  3. METOLATE [Concomitant]
     Route: 048
     Dates: start: 20090415
  4. BUCILANT [Concomitant]
     Indication: RHEUMATOID ARTHRITIS
     Route: 048
     Dates: start: 20100417
  5. SORELMON [Concomitant]
     Indication: RHEUMATOID ARTHRITIS
     Route: 048
     Dates: start: 20100925
  6. GLIMEPIRIDE [Concomitant]
     Indication: DIABETES MELLITUS
     Route: 048
     Dates: start: 20100915
  7. FOLIC ACID [Concomitant]
     Indication: PROPHYLAXIS
     Route: 048
     Dates: start: 20100213
  8. BLINDED DENOSUMAB [Suspect]
     Indication: RHEUMATOID ARTHRITIS
     Dosage: DENOSUMAB 60MG (Q2M OR Q3M OR Q6M) OR PLACEBO
     Route: 058
     Dates: start: 20110107
  9. CALCICHEW [Concomitant]
     Route: 048
     Dates: start: 20101213
  10. PREDNISOLONE [Concomitant]
     Indication: RHEUMATOID ARTHRITIS
     Route: 048
     Dates: start: 20100204
  11. BLINDED PLACEBO [Suspect]
     Indication: RHEUMATOID ARTHRITIS
     Dosage: DENOSUMAB 60MG (Q2M OR Q3M OR Q6M) OR PLACEBO
     Route: 058
     Dates: start: 20110107
  12. AMLODIPINE [Concomitant]
     Indication: HYPERTENSION
     Route: 048
     Dates: start: 20090519
  13. ASASURFAN [Concomitant]
     Indication: RHEUMATOID ARTHRITIS
     Route: 048
     Dates: start: 20090415

REACTIONS (1)
  - BRONCHOPNEUMONIA [None]
